FAERS Safety Report 13740764 (Version 3)
Quarter: 2017Q3

REPORT INFORMATION
  Report Type: Report from Study
  Country: None (occurrence: NL)
  Receive Date: 20170711
  Receipt Date: 20170713
  Transmission Date: 20171127
  Serious: Yes (Hospitalization, Other)
  Sender: FDA-Public Use
  Company Number: NL-ABBVIE-17K-114-2033753-00

PATIENT
  Age: 68 Year
  Sex: Male
  Weight: 65 kg

DRUGS (3)
  1. MOVICOLON [Concomitant]
     Active Substance: POLYETHYLENE GLYCOL 3350\POTASSIUM CHLORIDE\SODIUM BICARBONATE\SODIUM CHLORIDE
     Indication: PRODUCT USED FOR UNKNOWN INDICATION
  2. DUODOPA [Suspect]
     Active Substance: CARBIDOPA\LEVODOPA
     Indication: PARKINSON^S DISEASE
     Dosage: MD: 9.0, CD: 5.5, ED: 7.0
     Route: 050
     Dates: start: 20170327, end: 2017
  3. DUODOPA [Suspect]
     Active Substance: CARBIDOPA\LEVODOPA
     Dosage: MD 6, CD 5.4, ED 2
     Route: 050
     Dates: start: 2017

REACTIONS (7)
  - Fall [Recovered/Resolved]
  - On and off phenomenon [Recovering/Resolving]
  - Hip fracture [Not Recovered/Not Resolved]
  - Hyperkinesia [Recovering/Resolving]
  - Tension [Recovering/Resolving]
  - Infrequent bowel movements [Recovering/Resolving]
  - Stoma site discharge [Not Recovered/Not Resolved]

NARRATIVE: CASE EVENT DATE: 2017
